FAERS Safety Report 16638395 (Version 1)
Quarter: 2019Q3

REPORT INFORMATION
  Report Type: Spontaneous
  Country: GB (occurrence: GB)
  Receive Date: 20190726
  Receipt Date: 20190726
  Transmission Date: 20191004
  Serious: Yes (Other)
  Sender: FDA-Public Use
  Company Number: GB-TEVA-2019-GB-1083919

PATIENT
  Age: 25 Year
  Sex: Male
  Weight: 60 kg

DRUGS (2)
  1. EMTRICITABINE AND TENOFOVIR [Suspect]
     Active Substance: EMTRICITABINE\TENOFOVIR
     Dosage: EMTRICITABINE 200MG + TENOFOVIR DISOPROXIL 345 MG
     Route: 048
     Dates: start: 20190624
  2. RALTEGRAVIR. [Suspect]
     Active Substance: RALTEGRAVIR
     Route: 048
     Dates: start: 20190624

REACTIONS (4)
  - Myalgia [Unknown]
  - Hyperhidrosis [Unknown]
  - Diarrhoea [Unknown]
  - Fatigue [Unknown]

NARRATIVE: CASE EVENT DATE: 20190624
